FAERS Safety Report 23904964 (Version 1)
Quarter: 2024Q2

REPORT INFORMATION
  Report Type: Spontaneous
  Country: US (occurrence: US)
  Receive Date: 20240527
  Receipt Date: 20240527
  Transmission Date: 20240715
  Serious: Yes (Hospitalization, Other)
  Sender: FDA-Public Use
  Company Number: US-Inventia-000727

PATIENT
  Age: 68 Year
  Sex: Male

DRUGS (1)
  1. METFORMIN HYDROCHLORIDE [Suspect]
     Active Substance: METFORMIN HYDROCHLORIDE
     Indication: Type 2 diabetes mellitus
     Dosage: 850 MG TWO TIMES DAILY

REACTIONS (7)
  - Lactic acidosis [Recovered/Resolved]
  - Toxicity to various agents [Recovered/Resolved]
  - Hydronephrosis [Recovered/Resolved]
  - Calculus bladder [Recovered/Resolved]
  - Hydroureter [Recovered/Resolved]
  - Enterococcal bacteraemia [Recovered/Resolved]
  - Pneumonia aspiration [Recovered/Resolved]
